FAERS Safety Report 23621088 (Version 1)
Quarter: 2024Q1

REPORT INFORMATION
  Report Type: Spontaneous
  Country: IT (occurrence: IT)
  Receive Date: 20240312
  Receipt Date: 20240312
  Transmission Date: 20240410
  Serious: Yes (Death, Hospitalization, Other)
  Sender: FDA-Public Use
  Company Number: None

PATIENT
  Age: 74 Year
  Sex: Male

DRUGS (21)
  1. DAPTOMYCIN [Suspect]
     Active Substance: DAPTOMYCIN
     Indication: COVID-19
     Dosage: UNKNOWN DOSAGE AND FREQUENCY
     Route: 065
  2. ACETAMINOPHEN [Suspect]
     Active Substance: ACETAMINOPHEN
     Indication: COVID-19
     Dosage: UNKNOWN DOSAGE AND FREQUENCY
     Route: 065
  3. CLONAZEPAM [Suspect]
     Active Substance: CLONAZEPAM
     Indication: COVID-19
     Dosage: UNKNOWN DOSAGE AND FREQUENCY
     Route: 065
  4. REMIFENTANIL [Suspect]
     Active Substance: REMIFENTANIL
     Indication: COVID-19
     Dosage: UNKNOWN DOSAGE AND FREQUENCY
     Route: 065
  5. NOREPINEPHRINE [Suspect]
     Active Substance: NOREPINEPHRINE\NOREPINEPHRINE BITARTRATE
     Indication: COVID-19
     Dosage: UNKNOWN DOSAGE AND FREQUENCY
     Route: 065
  6. VANCOMYCIN [Suspect]
     Active Substance: VANCOMYCIN
     Indication: COVID-19
     Dosage: UNKNOWN DOSAGE AND FREQUENCY
     Route: 065
  7. HYDROXYCHLOROQUINE [Suspect]
     Active Substance: HYDROXYCHLOROQUINE
     Indication: COVID-19
     Dosage: UNKNOWN DOSAGE AND FREQUENCY
     Route: 065
  8. CHLORPHENIRAMINE [Suspect]
     Active Substance: CHLORPHENIRAMINE
     Indication: COVID-19
     Dosage: UNKNOWN DOSAGE AND FREQUENCY
     Route: 065
  9. FUROSEMIDE [Suspect]
     Active Substance: FUROSEMIDE
     Indication: COVID-19
     Dosage: UNKNOWN DOSAGE AND FREQUENCY
     Route: 065
  10. AZITHROMYCIN [Suspect]
     Active Substance: AZITHROMYCIN
     Indication: COVID-19
     Dosage: UNKNOWN DOSAGE AND FREQUENCY
     Route: 065
  11. OMEPRAZOLE [Suspect]
     Active Substance: OMEPRAZOLE
     Indication: COVID-19
     Dosage: UNKNOWN DOSAGE AND FREQUENCY
     Route: 065
  12. LEVOFLOXACIN [Suspect]
     Active Substance: LEVOFLOXACIN
     Indication: COVID-19
     Route: 065
  13. LEVOFLOXACIN [Suspect]
     Active Substance: LEVOFLOXACIN
     Indication: Off label use
     Dosage: UNKNOWN DOSAGE AND FREQUENCY
     Route: 065
  14. CANRENONE [Suspect]
     Active Substance: CANRENONE
     Indication: COVID-19
     Dosage: UNKNOWN DOSAGE AND FREQUENCY
     Route: 065
  15. FLUCONAZOLE [Suspect]
     Active Substance: FLUCONAZOLE
     Indication: COVID-19
     Dosage: UNKNOWN DOSAGE AND FREQUENCY
     Route: 065
  16. IOPAMIDOL [Suspect]
     Active Substance: IOPAMIDOL
     Indication: COVID-19
     Dosage: UNKNOWN DOSAGE AND FREQUENCY
     Route: 065
  17. ENOXAPARIN [Suspect]
     Active Substance: ENOXAPARIN
     Indication: COVID-19
     Dosage: UNKNOWN DOSAGE AND FREQUENCY
     Route: 065
  18. TIGECYCLINE [Suspect]
     Active Substance: TIGECYCLINE
     Indication: COVID-19
     Dosage: UNKNOWN DOSAGE AND FREQUENCY
     Route: 065
  19. ROCURONIUM [Suspect]
     Active Substance: ROCURONIUM BROMIDE
     Indication: COVID-19
     Route: 065
  20. PROPOFOL [Suspect]
     Active Substance: PROPOFOL
     Indication: COVID-19
     Dosage: UNKNOWN DOSAGE AND FREQUENCY
     Route: 065
  21. OXYGEN [Concomitant]
     Active Substance: OXYGEN
     Indication: Product used for unknown indication

REACTIONS (3)
  - Drug reaction with eosinophilia and systemic symptoms [Fatal]
  - Sepsis [Fatal]
  - Off label use [Unknown]
